FAERS Safety Report 6497347-4 (Version None)
Quarter: 2009Q4

REPORT INFORMATION
  Report Type: 
  Country: None (occurrence: None)
  Receive Date: 20091215
  Receipt Date: 20091005
  Transmission Date: 20100525
  Serious: No
  Sender: FDA-Public Use
  Company Number: A0810373A

PATIENT
  Age: 82 Year
  Sex: Male

DRUGS (11)
  1. AVODART [Suspect]
     Indication: BENIGN PROSTATIC HYPERPLASIA
     Dosage: .5MG PER DAY
     Route: 048
     Dates: start: 20060101
  2. ALLOPURINOL [Concomitant]
  3. ATENOLOL [Concomitant]
  4. FUROSEMIDE [Concomitant]
  5. LEVOTHYROXINE SODIUM [Concomitant]
  6. METFORMIN HCL [Concomitant]
  7. PENTOXIFYLLINE [Concomitant]
  8. PHENYTOIN SODIUM [Concomitant]
  9. PREVALITE [Concomitant]
  10. TERAZOSIN HCL [Concomitant]
  11. LISINOPRIL [Concomitant]

REACTIONS (1)
  - DRUG INEFFECTIVE [None]
